FAERS Safety Report 14294509 (Version 1)
Quarter: 2017Q4

REPORT INFORMATION
  Report Type: Spontaneous
  Country: US (occurrence: US)
  Receive Date: 20171218
  Receipt Date: 20171218
  Transmission Date: 20180321
  Serious: No
  Sender: FDA-Public Use
  Company Number: US-AUROBINDO-AUR-APU-2016-14242

PATIENT
  Sex: Female
  Weight: 82.54 kg

DRUGS (6)
  1. CORTISONE [Concomitant]
     Active Substance: CORTISONE\HYDROCORTISONE
     Indication: RASH
  2. ATENOLOL TABLETS USP 25 MG [Suspect]
     Active Substance: ATENOLOL
     Indication: BLOOD PRESSURE MEASUREMENT
     Dosage: 25 MG, UNK
     Route: 065
     Dates: start: 201401
  3. BETAMETHASONE. [Suspect]
     Active Substance: BETAMETHASONE
     Indication: RASH
     Dosage: UNK
     Route: 065
     Dates: start: 20160802
  4. ZETIA [Concomitant]
     Active Substance: EZETIMIBE
     Indication: BLOOD CHOLESTEROL DECREASED
  5. VALSARTAN AND HYDROCHLOROTHIAZIDE [Suspect]
     Active Substance: HYDROCHLOROTHIAZIDE\VALSARTAN
     Indication: BLOOD PRESSURE MEASUREMENT
     Route: 065
  6. METFORMIN [Suspect]
     Active Substance: METFORMIN HYDROCHLORIDE
     Indication: DIABETES MELLITUS
     Dosage: UNK
     Route: 065
     Dates: start: 201312

REACTIONS (12)
  - Dysarthria [Unknown]
  - Weight decreased [Recovered/Resolved]
  - Urticaria [Unknown]
  - Rash [Unknown]
  - Headache [Unknown]
  - Hyperhidrosis [Recovered/Resolved]
  - Drug ineffective [Unknown]
  - Agitation [Unknown]
  - Depression [Unknown]
  - Gait disturbance [Recovered/Resolved]
  - Confusional state [Unknown]
  - Dry mouth [Unknown]
